FAERS Safety Report 21712242 (Version 1)
Quarter: 2022Q4

REPORT INFORMATION
  Report Type: Spontaneous
  Country: US (occurrence: US)
  Receive Date: 20221212
  Receipt Date: 20221212
  Transmission Date: 20230113
  Serious: No
  Sender: FDA-Public Use
  Company Number: US-BAUSCH-BL-2022-026503

PATIENT
  Sex: Female

DRUGS (3)
  1. TRULANCE [Suspect]
     Active Substance: PLECANATIDE
     Indication: Irritable bowel syndrome
     Route: 065
     Dates: start: 20221130
  2. LATANOPROST [Concomitant]
     Active Substance: LATANOPROST
     Indication: Product used for unknown indication
  3. LUBIPROSTONE [Concomitant]
     Active Substance: LUBIPROSTONE
     Indication: Product used for unknown indication

REACTIONS (2)
  - Abdominal pain [Recovered/Resolved]
  - Flatulence [Recovered/Resolved]

NARRATIVE: CASE EVENT DATE: 20220101
